FAERS Safety Report 26120871 (Version 1)
Quarter: 2025Q4

REPORT INFORMATION
  Report Type: Spontaneous
  Country: US (occurrence: None)
  Receive Date: 20251204
  Receipt Date: 20251204
  Transmission Date: 20260118
  Serious: Yes (Hospitalization)
  Sender: FDA-CTU
  Company Number: None

PATIENT
  Sex: Male
  Weight: 114.9 kg

DRUGS (5)
  1. FLUOROURACIL [Suspect]
     Active Substance: FLUOROURACIL
     Dates: end: 20251117
  2. CAMPTOSAR [Suspect]
     Active Substance: IRINOTECAN HYDROCHLORIDE
     Dates: end: 20251103
  3. LEUCOVORIN CALCIUM [Suspect]
     Active Substance: LEUCOVORIN CALCIUM
     Dates: end: 20250825
  4. NIVOLUMAB [Suspect]
     Active Substance: NIVOLUMAB
     Dates: end: 20251117
  5. ELOXATIN [Suspect]
     Active Substance: OXALIPLATIN
     Dates: end: 20251117

REACTIONS (7)
  - Nausea [None]
  - Vomiting [None]
  - Fatigue [None]
  - Failure to thrive [None]
  - Blood sodium decreased [None]
  - Blood alkaline phosphatase increased [None]
  - Haemoglobin decreased [None]

NARRATIVE: CASE EVENT DATE: 20251201
